FAERS Safety Report 7414727-0 (Version None)
Quarter: 2011Q2

REPORT INFORMATION
  Report Type: 
  Country: None (occurrence: None)
  Receive Date: 20110414
  Receipt Date: 20110223
  Transmission Date: 20111010
  Serious: Yes (Death, Other)
  Sender: FDA-Public Use
  Company Number: US-BAYER-200915506NA

PATIENT
  Sex: Female
  Weight: 112 kg

DRUGS (22)
  1. LASIX [Concomitant]
     Route: 048
  2. HYDRALAZINE [Concomitant]
     Route: 048
  3. TRASYLOL [Suspect]
     Indication: TRICUSPID VALVE REPAIR
  4. ISOSORBIDE DINITRATE [Concomitant]
     Route: 048
  5. DOBUTAMINE HCL [Concomitant]
     Dosage: 3 MCG/KG/MIN, UNK
     Route: 042
     Dates: start: 20031006, end: 20031006
  6. EPINEPHRINE [Concomitant]
     Dosage: 0.3 MG/KG/MIN, UNK
     Route: 042
     Dates: start: 20031006, end: 20031006
  7. FLOLAN [Concomitant]
     Dosage: UNK
     Route: 042
     Dates: start: 20031006, end: 20031006
  8. PROPOFOL [Concomitant]
     Dosage: 50 MG, UNK
     Route: 042
     Dates: start: 20031006, end: 20031006
  9. SUCCINYLCHOLINE CHLORIDE [Concomitant]
     Dosage: UNK
     Route: 042
     Dates: start: 20031006, end: 20031006
  10. MILRINONE [Concomitant]
     Dosage: 5 MCG/KG/MIN, UNK
     Route: 042
     Dates: start: 20031006, end: 20031006
  11. ACETYLSALICYLIC ACID SRT [Concomitant]
     Route: 048
  12. INSULIN [Concomitant]
     Route: 058
  13. VERSED [Concomitant]
     Dosage: UNK
     Route: 042
     Dates: start: 20031006, end: 20031006
  14. FENTANYL [Concomitant]
     Dosage: UNK
     Route: 042
     Dates: start: 20031006, end: 20031006
  15. TRASYLOL [Suspect]
     Indication: ANEURYSMECTOMY
  16. PANCURONIUM BROMIDE [Concomitant]
     Dosage: UNK
     Route: 042
     Dates: start: 20031006, end: 20031006
  17. TRASYLOL [Suspect]
     Indication: INTRACARDIAC THROMBUS
  18. METOPROLOL TARTRATE [Concomitant]
     Route: 048
  19. NOREPINEPHRINE BITARTRATE [Concomitant]
     Dosage: 0.04 MG/MIN, UNK
     Route: 042
     Dates: start: 20031006, end: 20031006
  20. TRASYLOL [Suspect]
     Indication: CORONARY ARTERY BYPASS
     Dosage: UNK
     Dates: start: 20031006
  21. ZAROXOLYN [Concomitant]
     Route: 048
  22. HEPARIN [Concomitant]
     Dosage: UNK
     Route: 042
     Dates: start: 20031006, end: 20031006

REACTIONS (10)
  - RENAL FAILURE [None]
  - ANXIETY [None]
  - FEAR [None]
  - INJURY [None]
  - CEREBROVASCULAR ACCIDENT [None]
  - PAIN [None]
  - DEATH [None]
  - ADVERSE EVENT [None]
  - DEPRESSION [None]
  - ANHEDONIA [None]
